FAERS Safety Report 14382140 (Version 1)
Quarter: 2018Q1

REPORT INFORMATION
  Report Type: Spontaneous
  Country: US (occurrence: US)
  Receive Date: 20180112
  Receipt Date: 20180112
  Transmission Date: 20180509
  Serious: No
  Sender: FDA-Public Use
  Company Number: US-GLENMARK PHARMACEUTICALS-2017GMK030078

PATIENT

DRUGS (1)
  1. INDOMETHACIN CAPSULES USP, 50MG [Suspect]
     Active Substance: INDOMETHACIN
     Indication: GOUT
     Dosage: UNK
     Route: 065

REACTIONS (5)
  - Eye disorder [Unknown]
  - Nausea [Unknown]
  - Dizziness [Unknown]
  - Malaise [Unknown]
  - Heart rate increased [Unknown]
